FAERS Safety Report 9493866 (Version 1)
Quarter: 2013Q3

REPORT INFORMATION
  Report Type: Report from Study
  Country: US (occurrence: US)
  Receive Date: 20130902
  Receipt Date: 20130902
  Transmission Date: 20140515
  Serious: Yes (Hospitalization, Other)
  Sender: FDA-Public Use
  Company Number: US-ROCHE-1267736

PATIENT
  Age: 50 Year
  Sex: Female
  Weight: 67.4 kg

DRUGS (15)
  1. HERCEPTIN [Suspect]
     Indication: BREAST CANCER
     Route: 065
     Dates: start: 200512
  2. HERCEPTIN [Suspect]
     Route: 065
     Dates: start: 200605
  3. HERCEPTIN [Suspect]
     Route: 065
     Dates: start: 20110513
  4. HERCEPTIN [Suspect]
     Route: 065
     Dates: start: 2011
  5. AVASTIN [Suspect]
     Indication: BREAST CANCER
     Route: 065
     Dates: start: 200512
  6. VITAMIN C [Concomitant]
     Dosage: 6-7 TABLETS
     Route: 065
  7. LUPRON [Concomitant]
     Route: 065
     Dates: start: 200605
  8. FEMARA [Concomitant]
     Route: 065
     Dates: start: 200605
  9. NAVELBINE [Concomitant]
     Route: 065
     Dates: start: 200512
  10. CYTOXAN [Concomitant]
     Route: 065
     Dates: start: 2006, end: 200605
  11. DOXORUBICIN [Concomitant]
     Route: 065
     Dates: start: 2006, end: 200605
  12. 5-FU [Concomitant]
     Route: 065
     Dates: start: 2006, end: 200605
  13. TAXOL [Concomitant]
     Route: 065
     Dates: start: 20010513
  14. CARBOPLATIN [Concomitant]
     Route: 065
     Dates: start: 20110513
  15. ZOMETA [Concomitant]
     Indication: METASTASES TO BONE
     Route: 065
     Dates: start: 2011, end: 201204

REACTIONS (8)
  - Dyspnoea [Unknown]
  - Malignant pleural effusion [Unknown]
  - Invasive ductal breast carcinoma [Unknown]
  - Metastases to bone [Unknown]
  - Metastases to lung [Unknown]
  - Metastases to liver [Unknown]
  - Cough [Unknown]
  - Breast mass [Unknown]
